FAERS Safety Report 8489698-9 (Version None)
Quarter: 2012Q3

REPORT INFORMATION
  Report Type: 
  Country: None (occurrence: None)
  Receive Date: 20120705
  Receipt Date: 20120627
  Transmission Date: 20120928
  Serious: Yes (Hospitalization)
  Sender: FDA-Public Use
  Company Number: BR-GLAXOSMITHKLINE-A0983235A

PATIENT
  Sex: Male
  Weight: 74 kg

DRUGS (4)
  1. FLUTICASONE PROPIONATE/SALMETEROL [Suspect]
     Indication: LUNG DISORDER
     Dosage: 1PUFF ALTERNATE DAYS
     Route: 055
     Dates: start: 20040101
  2. HYDROCHLOROTHIAZIDE [Concomitant]
     Dosage: 1TAB TWICE PER DAY
     Route: 048
     Dates: start: 20070101
  3. FLUTICASONE PROPIONATE/SALMETEROL [Suspect]
     Dosage: 4PUFF PER DAY
     Route: 045
     Dates: start: 20040101
  4. ENALAPRIL MALEATE [Concomitant]
     Dosage: 1TAB TWICE PER DAY
     Route: 048
     Dates: start: 20070101

REACTIONS (3)
  - GALLBLADDER DISORDER [None]
  - CATARACT [None]
  - RETINAL DETACHMENT [None]
